FAERS Safety Report 18747784 (Version 2)
Quarter: 2021Q1

REPORT INFORMATION
  Report Type: Spontaneous
  Country: CZ (occurrence: CZ)
  Receive Date: 20210115
  Receipt Date: 20210326
  Transmission Date: 20210419
  Serious: Yes (Other)
  Sender: FDA-Public Use
  Company Number: CZ-MYLANLABS-2021M1001019

PATIENT
  Age: 3 Decade
  Sex: Female

DRUGS (26)
  1. PREGABALIN. [Suspect]
     Active Substance: PREGABALIN
     Indication: MIGRAINE PROPHYLAXIS
     Dosage: 150 MILLIGRAM, BID
     Route: 048
     Dates: start: 201802, end: 201804
  2. GABAPENTIN. [Suspect]
     Active Substance: GABAPENTIN
     Indication: MIGRAINE
     Dosage: UNK
     Route: 065
     Dates: start: 201401, end: 201403
  3. FROVATRIPTAN. [Concomitant]
     Active Substance: FROVATRIPTAN
     Indication: MIGRAINE
     Dosage: UNK
  4. FLUOXETINE [Concomitant]
     Active Substance: FLUOXETINE HYDROCHLORIDE
     Indication: DEPRESSION
     Dosage: UNK
  5. ELETRIPTAN. [Concomitant]
     Active Substance: ELETRIPTAN
     Indication: MIGRAINE
     Dosage: UNK
  6. NIMESULIDE [Concomitant]
     Active Substance: NIMESULIDE
     Dosage: 100 MILLIGRAM
  7. KETOPROFEN. [Concomitant]
     Active Substance: KETOPROFEN
     Dosage: 100 MILLIGRAM
  8. IBUPROFEN. [Concomitant]
     Active Substance: IBUPROFEN
     Dosage: UPTO 600MG
  9. METOPROLOL. [Concomitant]
     Active Substance: METOPROLOL
     Indication: MIGRAINE PROPHYLAXIS
     Dosage: 50 MILLIGRAM, QD
     Route: 048
     Dates: start: 201403, end: 201411
  10. VENLAFAXINE [Concomitant]
     Active Substance: VENLAFAXINE HYDROCHLORIDE
     Indication: MIGRAINE PROPHYLAXIS
     Dosage: 150 MILLIGRAM, 5/2015, RESTARTED AGAIN 2/2019
     Route: 048
     Dates: start: 201504, end: 201505
  11. CODEINE [Concomitant]
     Active Substance: CODEINE
     Dosage: UNK
  12. ZONISAMIDE. [Concomitant]
     Active Substance: ZONISAMIDE
     Indication: MIGRAINE
     Dosage: 100 MILLIGRAM, QD
  13. PREGABALIN. [Suspect]
     Active Substance: PREGABALIN
     Indication: MIGRAINE
     Dosage: 300 MILLIGRAM, QD
     Route: 065
  14. SUMATRIPTAN. [Suspect]
     Active Substance: SUMATRIPTAN
     Indication: MIGRAINE
     Dosage: 50MG AS NEEDED
     Route: 065
  15. FLUNARIZINE [Suspect]
     Active Substance: FLUNARIZINE
     Indication: PROPHYLAXIS
     Dosage: UNK
  16. PAROXETINE. [Concomitant]
     Active Substance: PAROXETINE
     Indication: DEPRESSION
     Dosage: UNK
  17. SERTRALINE [Concomitant]
     Active Substance: SERTRALINE HYDROCHLORIDE
     Indication: DEPRESSION
     Dosage: UNK
  18. METAMIZOLE [Concomitant]
     Active Substance: METAMIZOLE
     Dosage: UNK
  19. TOPIRAMATE. [Concomitant]
     Active Substance: TOPIRAMATE
     Indication: MIGRAINE PROPHYLAXIS
     Dosage: 50MG MORNING, 25 MG EVENING
     Route: 048
     Dates: start: 201411, end: 201504
  20. VENLAFAXINE [Concomitant]
     Active Substance: VENLAFAXINE HYDROCHLORIDE
     Dosage: 150 MILLIGRAM
     Route: 048
     Dates: start: 201902
  21. PREGABALIN. [Concomitant]
     Active Substance: PREGABALIN
     Indication: DEPRESSION
     Dosage: UNK
  22. INDOMETACIN [Concomitant]
     Active Substance: INDOMETHACIN
     Dosage: 100 MILLIGRAM
  23. AMITRIPTYLINE [Suspect]
     Active Substance: AMITRIPTYLINE
     Indication: PROPHYLAXIS
     Dosage: UNK
  24. PARACETAMOL [Concomitant]
     Active Substance: ACETAMINOPHEN
     Dosage: 1000 MILLIGRAM
  25. ACECLOFENAC [Concomitant]
     Active Substance: ACECLOFENAC
     Dosage: 100 MILLIGRAM
  26. ZONISAMIDE. [Suspect]
     Active Substance: ZONISAMIDE
     Indication: MIGRAINE PROPHYLAXIS
     Dosage: 100 MILLIGRAM, QD
     Route: 048
     Dates: start: 201802, end: 201804

REACTIONS (11)
  - Feeling abnormal [Unknown]
  - Dyspnoea [Unknown]
  - Off label use [Unknown]
  - Urticaria chronic [Unknown]
  - Pain [Unknown]
  - Fatigue [Recovered/Resolved]
  - Eye pruritus [Unknown]
  - Urinary tract infection [Unknown]
  - Paraesthesia [Unknown]
  - Drug ineffective [Recovered/Resolved]
  - Dermatitis bullous [Unknown]

NARRATIVE: CASE EVENT DATE: 201401
